FAERS Safety Report 7147886-8 (Version None)
Quarter: 2010Q4

REPORT INFORMATION
  Report Type: 
  Country: None (occurrence: None)
  Receive Date: 20101206
  Receipt Date: 20101206
  Transmission Date: 20110411
  Serious: Yes (Hospitalization)
  Sender: FDA-Public Use
  Company Number: None

PATIENT
  Sex: Female
  Weight: 50.8 kg

DRUGS (2)
  1. CARBOPLATIN [Suspect]
     Dosage: 639 MG
     Dates: end: 20100421
  2. TAXOL [Suspect]
     Dosage: 300 MG
     Dates: end: 20100421

REACTIONS (5)
  - DEHYDRATION [None]
  - DIARRHOEA [None]
  - HYPONATRAEMIA [None]
  - NAUSEA [None]
  - VOMITING [None]
